FAERS Safety Report 23116879 (Version 1)
Quarter: 2023Q4

REPORT INFORMATION
  Report Type: Spontaneous
  Country: FR (occurrence: FR)
  Receive Date: 20231027
  Receipt Date: 20231027
  Transmission Date: 20240110
  Serious: Yes (Other)
  Sender: FDA-Public Use
  Company Number: FR-SUN PHARMACEUTICAL INDUSTRIES LTD-2023RR-414646

PATIENT
  Age: 58 Year
  Sex: Female
  Weight: 66 kg

DRUGS (1)
  1. ESOMEPRAZOLE [Suspect]
     Active Substance: ESOMEPRAZOLE
     Indication: Oesophagitis
     Dosage: 20 MILLIGRAM, DAILY
     Route: 048
     Dates: start: 2018, end: 20230524

REACTIONS (1)
  - Gastric polyps [Not Recovered/Not Resolved]

NARRATIVE: CASE EVENT DATE: 20210101
